FAERS Safety Report 9919839 (Version 1)
Quarter: 2014Q1

REPORT INFORMATION
  Report Type: Spontaneous
  Country: IT (occurrence: IT)
  Receive Date: 20140224
  Receipt Date: 20140224
  Transmission Date: 20141002
  Serious: Yes (Hospitalization)
  Sender: FDA-Public Use
  Company Number: PHHY2014IT021915

PATIENT
  Age: 70 Year
  Sex: Female

DRUGS (8)
  1. VOLTAREN [Suspect]
     Indication: PAIN
     Dosage: UNK UKN, UNK
     Dates: start: 20131218, end: 20131218
  2. ATENOLOL [Concomitant]
     Dosage: 50 MG, UNK
     Route: 048
     Dates: start: 20120101, end: 20131217
  3. ZANEDIP [Concomitant]
     Dosage: UNK UKN, UNK
     Dates: start: 20120101, end: 20131217
  4. TIKLID [Concomitant]
     Dosage: UNK UKN, UNK
     Dates: start: 20120101, end: 20131217
  5. VASORETIC [Concomitant]
     Dosage: UNK UKN, UNK
     Dates: start: 20120101, end: 20131217
  6. DIBASE [Concomitant]
     Dosage: UNK UKN, UNK
     Dates: start: 20120101, end: 20131217
  7. DELORAZEPAM [Concomitant]
     Dosage: UNK UKN, UNK
     Dates: start: 20120101, end: 20131217
  8. ESKIM [Concomitant]
     Dosage: UNK UKN, UNK
     Dates: start: 20120101, end: 20131217

REACTIONS (4)
  - Feeling hot [Recovered/Resolved]
  - Diarrhoea [Recovered/Resolved]
  - Erythema [Recovered/Resolved]
  - Pruritus [Recovered/Resolved]
